FAERS Safety Report 5442606-7 (Version None)
Quarter: 2007Q3

REPORT INFORMATION
  Report Type: 
  Country: None (occurrence: None)
  Receive Date: 20070904
  Receipt Date: 20070828
  Transmission Date: 20080115
  Serious: Yes (Hospitalization)
  Sender: FDA-Public Use
  Company Number: FR-ASTRAZENECA-2007CG01233

PATIENT
  Age: 67 Year
  Sex: Male

DRUGS (7)
  1. TENORMIN [Suspect]
     Route: 048
     Dates: start: 19990101, end: 20070515
  2. MOPRAL [Suspect]
     Route: 048
  3. FLECAINIDE ACETATE [Suspect]
     Indication: ARRHYTHMIA SUPRAVENTRICULAR
     Dates: start: 20070321, end: 20070521
  4. CHRONADALATE [Suspect]
     Route: 048
     Dates: end: 20070521
  5. MEDIATENSYL [Suspect]
     Route: 048
  6. KARDEGIC [Suspect]
     Indication: ARRHYTHMIA SUPRAVENTRICULAR
     Route: 048
     Dates: start: 20070321, end: 20070625
  7. CORTANCYL [Concomitant]
     Indication: ARTHRALGIA
     Route: 048

REACTIONS (1)
  - CUTANEOUS LUPUS ERYTHEMATOSUS [None]
